FAERS Safety Report 6751087-2 (Version None)
Quarter: 2010Q2

REPORT INFORMATION
  Report Type: 
  Country: None (occurrence: None)
  Receive Date: 20100602
  Receipt Date: 20100525
  Transmission Date: 20101027
  Serious: Yes (Hospitalization, Other)
  Sender: FDA-Public Use
  Company Number: FR-JNJFOC-20100510853

PATIENT
  Sex: Female

DRUGS (6)
  1. RISPERDAL [Suspect]
     Indication: PSYCHOTIC DISORDER
     Route: 048
  2. TRIHEXYPHENIDYL HCL [Suspect]
     Indication: PARKINSON'S DISEASE
     Route: 048
  3. AMAREL [Concomitant]
     Indication: TYPE 2 DIABETES MELLITUS
     Route: 048
  4. ZOLPIDEM [Concomitant]
     Indication: SLEEP DISORDER
     Route: 065
  5. BROMAZEPAM [Concomitant]
     Route: 065
  6. ENDOTELON [Concomitant]
     Route: 048

REACTIONS (2)
  - ILEUS [None]
  - URINARY TRACT INFECTION [None]
